FAERS Safety Report 23392887 (Version 2)
Quarter: 2024Q1

REPORT INFORMATION
  Report Type: Spontaneous
  Country: CA (occurrence: CA)
  Receive Date: 20240111
  Receipt Date: 20240326
  Transmission Date: 20240409
  Serious: Yes (Hospitalization, Other)
  Sender: FDA-Public Use
  Company Number: CA-BRISTOL-MYERS SQUIBB COMPANY-2024-005016

PATIENT
  Age: 48 Year
  Sex: Female
  Weight: 106 kg

DRUGS (123)
  1. PACLITAXEL [Suspect]
     Active Substance: PACLITAXEL
     Indication: Supportive care
     Route: 042
  2. PACLITAXEL [Suspect]
     Active Substance: PACLITAXEL
     Indication: Breast cancer
     Dosage: LIQUID INTRAVENOUS
     Route: 042
  3. PACLITAXEL [Suspect]
     Active Substance: PACLITAXEL
     Dosage: SOLUTION FOR INJECTION/INFUSION
     Route: 042
  4. PACLITAXEL [Suspect]
     Active Substance: PACLITAXEL
     Dosage: SOLUTION FOR INJECTION/INFUSION
     Route: 042
  5. PACLITAXEL [Suspect]
     Active Substance: PACLITAXEL
     Dosage: SOLUTION FOR INJECTION/INFUSION
     Route: 042
  6. PACLITAXEL [Suspect]
     Active Substance: PACLITAXEL
     Dosage: SOLUTION FOR INJECTION/INFUSION
     Route: 042
  7. PACLITAXEL [Suspect]
     Active Substance: PACLITAXEL
     Dosage: SOLUTION FOR INJECTION/INFUSION
     Route: 042
  8. PACLITAXEL [Suspect]
     Active Substance: PACLITAXEL
     Dosage: SOLUTION FOR INJECTION/INFUSION
     Route: 042
  9. ACETAMINOPHEN AND CODEINE [Concomitant]
     Active Substance: ACETAMINOPHEN\CODEINE PHOSPHATE
     Indication: Tardive dyskinesia
     Dosage: ELX,USP160 MG-8MG/5ML
  10. ACETAMINOPHEN AND CODEINE [Concomitant]
     Active Substance: ACETAMINOPHEN\CODEINE PHOSPHATE
     Dosage: ELX,USP160 MG-8MG/5ML
  11. ACETAMINOPHEN AND CODEINE [Concomitant]
     Active Substance: ACETAMINOPHEN\CODEINE PHOSPHATE
     Dosage: FORMULATION: ELIXIR?ELX,USP160 MG-8MG/5ML
  12. ACETAMINOPHEN AND CODEINE [Concomitant]
     Active Substance: ACETAMINOPHEN\CODEINE PHOSPHATE
  13. ACETAMINOPHEN AND CODEINE [Concomitant]
     Active Substance: ACETAMINOPHEN\CODEINE PHOSPHATE
  14. ACETAMINOPHEN AND CODEINE [Concomitant]
     Active Substance: ACETAMINOPHEN\CODEINE PHOSPHATE
  15. ACETAMINOPHEN AND CODEINE [Concomitant]
     Active Substance: ACETAMINOPHEN\CODEINE PHOSPHATE
     Dosage: ELX,USP160 MG-8MG/5ML
  16. BETAMETHASONE [Concomitant]
     Active Substance: BETAMETHASONE\BETAMETHASONE DIPROPIONATE
     Indication: Tardive dyskinesia
     Route: 048
  17. BETAMETHASONE [Concomitant]
     Active Substance: BETAMETHASONE\BETAMETHASONE DIPROPIONATE
  18. BETAMETHASONE [Concomitant]
     Active Substance: BETAMETHASONE\BETAMETHASONE DIPROPIONATE
     Route: 048
  19. DEXAMETHASONE [Concomitant]
     Active Substance: DEXAMETHASONE
     Indication: Supportive care
     Route: 048
  20. DEXAMETHASONE [Concomitant]
     Active Substance: DEXAMETHASONE
     Route: 048
  21. DEXAMETHASONE [Concomitant]
     Active Substance: DEXAMETHASONE
     Route: 048
  22. DEXAMETHASONE [Concomitant]
     Active Substance: DEXAMETHASONE
     Route: 048
  23. DEXAMETHASONE [Concomitant]
     Active Substance: DEXAMETHASONE
     Route: 048
  24. DEXAMETHASONE [Concomitant]
     Active Substance: DEXAMETHASONE
     Route: 048
  25. DEXAMETHASONE [Concomitant]
     Active Substance: DEXAMETHASONE
     Route: 048
  26. DOXORUBICIN [Concomitant]
     Active Substance: DOXORUBICIN
     Indication: Breast cancer
     Route: 042
  27. DOXORUBICIN [Concomitant]
     Active Substance: DOXORUBICIN
     Route: 042
  28. DOXORUBICIN [Concomitant]
     Active Substance: DOXORUBICIN
     Route: 042
  29. DOXORUBICIN [Concomitant]
     Active Substance: DOXORUBICIN
     Dosage: SOLUTION INTRAVENOUS
     Route: 042
  30. DOXORUBICIN [Concomitant]
     Active Substance: DOXORUBICIN
     Route: 042
  31. EMEND [Concomitant]
     Active Substance: APREPITANT
     Indication: Supportive care
     Route: 048
  32. EMEND [Concomitant]
     Active Substance: APREPITANT
     Route: 048
  33. EMEND [Concomitant]
     Active Substance: APREPITANT
     Route: 048
  34. EMEND [Concomitant]
     Active Substance: APREPITANT
     Route: 048
  35. EMEND [Concomitant]
     Active Substance: APREPITANT
     Route: 048
  36. EMEND [Concomitant]
     Active Substance: APREPITANT
     Route: 048
  37. EMEND [Concomitant]
     Active Substance: APREPITANT
     Route: 048
  38. EMEND [Concomitant]
     Active Substance: APREPITANT
     Route: 048
  39. EMEND [Concomitant]
     Active Substance: APREPITANT
     Route: 048
  40. EMEND [Concomitant]
     Active Substance: APREPITANT
     Route: 048
  41. EMEND [Concomitant]
     Active Substance: APREPITANT
     Route: 048
  42. EMEND [Concomitant]
     Active Substance: APREPITANT
     Route: 048
  43. EMEND [Concomitant]
     Active Substance: APREPITANT
     Route: 048
  44. EMEND [Concomitant]
     Active Substance: APREPITANT
     Route: 048
  45. EMEND [Concomitant]
     Active Substance: APREPITANT
     Route: 048
  46. EMEND [Concomitant]
     Active Substance: APREPITANT
     Route: 048
  47. EMEND [Concomitant]
     Active Substance: APREPITANT
     Route: 048
  48. EMEND [Concomitant]
     Active Substance: APREPITANT
     Route: 048
  49. EMEND [Concomitant]
     Active Substance: APREPITANT
     Route: 048
  50. EMEND [Concomitant]
     Active Substance: APREPITANT
     Route: 048
  51. EMEND [Concomitant]
     Active Substance: APREPITANT
     Route: 048
  52. ENOXAPARIN [Concomitant]
     Active Substance: ENOXAPARIN
     Indication: Tardive dyskinesia
     Route: 058
  53. ENOXAPARIN [Concomitant]
     Active Substance: ENOXAPARIN
     Route: 058
  54. ENOXAPARIN [Concomitant]
     Active Substance: ENOXAPARIN
     Route: 058
  55. ENOXAPARIN [Concomitant]
     Active Substance: ENOXAPARIN
     Route: 058
  56. LEVOFLOXACIN [Concomitant]
     Active Substance: LEVOFLOXACIN
     Indication: Tardive dyskinesia
     Route: 048
  57. LEVOFLOXACIN [Concomitant]
     Active Substance: LEVOFLOXACIN
     Route: 048
  58. LEVOFLOXACIN [Concomitant]
     Active Substance: LEVOFLOXACIN
     Route: 048
  59. LEVOFLOXACIN [Concomitant]
     Active Substance: LEVOFLOXACIN
     Route: 048
  60. LEVOFLOXACIN [Concomitant]
     Active Substance: LEVOFLOXACIN
     Route: 048
  61. LORAZEPAM [Concomitant]
     Active Substance: LORAZEPAM
     Indication: Tardive dyskinesia
     Route: 048
  62. LORAZEPAM [Concomitant]
     Active Substance: LORAZEPAM
     Route: 048
  63. LORAZEPAM [Concomitant]
     Active Substance: LORAZEPAM
     Route: 048
  64. LORAZEPAM [Concomitant]
     Active Substance: LORAZEPAM
     Route: 048
  65. LORAZEPAM [Concomitant]
     Active Substance: LORAZEPAM
     Route: 048
  66. METOCLOPRAMIDE [Concomitant]
     Active Substance: METOCLOPRAMIDE
     Indication: Tardive dyskinesia
     Route: 048
  67. METOCLOPRAMIDE [Concomitant]
     Active Substance: METOCLOPRAMIDE
     Route: 048
  68. METOCLOPRAMIDE [Concomitant]
     Active Substance: METOCLOPRAMIDE
     Route: 048
  69. METOCLOPRAMIDE [Concomitant]
     Active Substance: METOCLOPRAMIDE
     Route: 048
  70. NEULASTA [Concomitant]
     Active Substance: PEGFILGRASTIM
     Indication: Supportive care
     Dosage: SOLUTION SUBCUTANEOUS
     Route: 058
  71. NEULASTA [Concomitant]
     Active Substance: PEGFILGRASTIM
     Dosage: SOLUTION SUBCUTANEOUS
     Route: 058
  72. NEULASTA [Concomitant]
     Active Substance: PEGFILGRASTIM
     Dosage: SOLUTION SUBCUTANEOUS
     Route: 058
  73. NEULASTA [Concomitant]
     Active Substance: PEGFILGRASTIM
     Dosage: SOLUTION SUBCUTANEOUS
     Route: 058
  74. NEULASTA [Concomitant]
     Active Substance: PEGFILGRASTIM
     Dosage: SOLUTION SUBCUTANEOUS
     Route: 058
  75. NEULASTA [Concomitant]
     Active Substance: PEGFILGRASTIM
     Dosage: SOLUTION SUBCUTANEOUS
     Route: 058
  76. NEULASTA [Concomitant]
     Active Substance: PEGFILGRASTIM
     Dosage: SOLUTION SUBCUTANEOUS
     Route: 058
  77. NEUPOGEN [Concomitant]
     Active Substance: FILGRASTIM
     Indication: Supportive care
     Route: 048
  78. NEUPOGEN [Concomitant]
     Active Substance: FILGRASTIM
     Route: 048
  79. NEUPOGEN [Concomitant]
     Active Substance: FILGRASTIM
  80. NEUPOGEN [Concomitant]
     Active Substance: FILGRASTIM
  81. NEUPOGEN [Concomitant]
     Active Substance: FILGRASTIM
     Dosage: SOLUTION  INTRAVENOUS
  82. NEUPOGEN [Concomitant]
     Active Substance: FILGRASTIM
  83. ONDANSETRON [Concomitant]
     Active Substance: ONDANSETRON
     Indication: Supportive care
     Dosage: ORODISPERSIBLE FILM
     Route: 048
  84. ONDANSETRON [Concomitant]
     Active Substance: ONDANSETRON
     Dosage: ORODISPERSIBLE FILM
     Route: 048
  85. ONDANSETRON [Concomitant]
     Active Substance: ONDANSETRON
     Dosage: ORODISPERSIBLE FILM
     Route: 048
  86. ONDANSETRON [Concomitant]
     Active Substance: ONDANSETRON
     Dosage: ORODISPERSIBLE FILM
     Route: 048
  87. ONDANSETRON [Concomitant]
     Active Substance: ONDANSETRON
     Dosage: ORODISPERSIBLE FILM
     Route: 048
  88. ONDANSETRON [Concomitant]
     Active Substance: ONDANSETRON
     Dosage: ORODISPERSIBLE FILM
     Route: 048
  89. ONDANSETRON [Concomitant]
     Active Substance: ONDANSETRON
     Route: 048
  90. ONDANSETRON [Concomitant]
     Active Substance: ONDANSETRON
     Dosage: ORODISPERSIBLE FILM
     Route: 048
  91. ONDANSETRON [Concomitant]
     Active Substance: ONDANSETRON
     Dosage: ORODISPERSIBLE FILM
     Route: 048
  92. ONDANSETRON [Concomitant]
     Active Substance: ONDANSETRON
     Dosage: ORODISPERSIBLE FILM
     Route: 048
  93. ONDANSETRON [Concomitant]
     Active Substance: ONDANSETRON
     Dosage: ORODISPERSIBLE FILM
     Route: 048
  94. ONDANSETRON [Concomitant]
     Active Substance: ONDANSETRON
     Dosage: ORODISPERSIBLE FILM
     Route: 048
  95. CYCLOPHOSPHAMIDE [Concomitant]
     Active Substance: CYCLOPHOSPHAMIDE
     Indication: Tardive dyskinesia
     Dosage: POWDER FOR SOLUTION FOR INJECTION/INFUSION
     Route: 042
  96. CYCLOPHOSPHAMIDE [Concomitant]
     Active Substance: CYCLOPHOSPHAMIDE
     Indication: Breast cancer
     Dosage: POWDER FOR SOLUTION FOR INJECTION/INFUSION
     Route: 042
  97. CYCLOPHOSPHAMIDE [Concomitant]
     Active Substance: CYCLOPHOSPHAMIDE
     Dosage: POWDER FOR SOLUTION FOR INJECTION/INFUSION
     Route: 042
  98. CYCLOPHOSPHAMIDE [Concomitant]
     Active Substance: CYCLOPHOSPHAMIDE
     Dosage: POWDER FOR SOLUTION FOR INJECTION/INFUSION
     Route: 042
  99. CYCLOPHOSPHAMIDE [Concomitant]
     Active Substance: CYCLOPHOSPHAMIDE
     Dosage: POWDER FOR SOLUTION FOR INJECTION/INFUSION
     Route: 042
  100. CYCLOPHOSPHAMIDE [Concomitant]
     Active Substance: CYCLOPHOSPHAMIDE
     Dosage: POWDER FOR SOLUTION FOR INJECTION/INFUSION
     Route: 042
  101. RANITIDINE HYDROCHLORIDE [Concomitant]
     Active Substance: RANITIDINE HYDROCHLORIDE
     Indication: Tardive dyskinesia
     Route: 048
  102. RANITIDINE HYDROCHLORIDE [Concomitant]
     Active Substance: RANITIDINE HYDROCHLORIDE
     Route: 048
  103. RANITIDINE HYDROCHLORIDE [Concomitant]
     Active Substance: RANITIDINE HYDROCHLORIDE
     Route: 048
  104. RANITIDINE HYDROCHLORIDE [Concomitant]
     Active Substance: RANITIDINE HYDROCHLORIDE
     Route: 048
  105. RANITIDINE HYDROCHLORIDE [Concomitant]
     Active Substance: RANITIDINE HYDROCHLORIDE
     Route: 048
  106. RANITIDINE HYDROCHLORIDE [Concomitant]
     Active Substance: RANITIDINE HYDROCHLORIDE
     Route: 048
  107. RANITIDINE HYDROCHLORIDE [Concomitant]
     Active Substance: RANITIDINE HYDROCHLORIDE
     Route: 048
  108. TRASTUZUMAB [Concomitant]
     Active Substance: TRASTUZUMAB
     Indication: Tardive dyskinesia
  109. TRASTUZUMAB [Concomitant]
     Active Substance: TRASTUZUMAB
  110. TRASTUZUMAB [Concomitant]
     Active Substance: TRASTUZUMAB
  111. TRASTUZUMAB [Concomitant]
     Active Substance: TRASTUZUMAB
  112. TRASTUZUMAB [Concomitant]
     Active Substance: TRASTUZUMAB
  113. TRASTUZUMAB [Concomitant]
     Active Substance: TRASTUZUMAB
  114. TRASTUZUMAB [Concomitant]
     Active Substance: TRASTUZUMAB
  115. TRASTUZUMAB [Concomitant]
     Active Substance: TRASTUZUMAB
  116. TRASTUZUMAB [Concomitant]
     Active Substance: TRASTUZUMAB
  117. TRASTUZUMAB [Concomitant]
     Active Substance: TRASTUZUMAB
  118. TRASTUZUMAB [Concomitant]
     Active Substance: TRASTUZUMAB
     Route: 048
  119. APREPITANT [Concomitant]
     Active Substance: APREPITANT
     Indication: Supportive care
     Route: 048
  120. APREPITANT [Concomitant]
     Active Substance: APREPITANT
     Route: 048
  121. APREPITANT [Concomitant]
     Active Substance: APREPITANT
     Route: 048
  122. APREPITANT [Concomitant]
     Active Substance: APREPITANT
     Route: 048
  123. APREPITANT [Concomitant]
     Active Substance: APREPITANT
     Route: 048

REACTIONS (12)
  - Atelectasis [Recovered/Resolved]
  - Cough [Recovered/Resolved]
  - Dyspnoea [Recovered/Resolved]
  - Fatigue [Recovered/Resolved]
  - Gastrointestinal disorder [Recovered/Resolved]
  - Hypoxia [Recovered/Resolved]
  - Nausea [Recovered/Resolved]
  - Off label use [Unknown]
  - Pyrexia [Recovered/Resolved]
  - Rash [Recovered/Resolved]
  - Hospitalisation [Recovered/Resolved]
  - Computerised tomogram thorax abnormal [Recovered/Resolved]
